FAERS Safety Report 10357293 (Version 1)
Quarter: 2014Q3

REPORT INFORMATION
  Report Type: Spontaneous
  Country: BR (occurrence: BR)
  Receive Date: 20140801
  Receipt Date: 20140801
  Transmission Date: 20150326
  Serious: Yes (Hospitalization)
  Sender: FDA-Public Use
  Company Number: BR-PFIZER INC-2014212413

PATIENT
  Age: 62 Year
  Sex: Female
  Weight: 64 kg

DRUGS (3)
  1. LOSARTAN [Concomitant]
     Active Substance: LOSARTAN
     Indication: ARTHRITIS
     Dosage: 20 MG, DAILY
     Dates: start: 2011
  2. LIPITOR [Suspect]
     Active Substance: ATORVASTATIN CALCIUM
     Indication: PREOPERATIVE CARE
     Dosage: 20 MG, DAILY
     Route: 048
     Dates: start: 201405, end: 201407
  3. LOSARTAN [Concomitant]
     Active Substance: LOSARTAN
     Indication: OSTEOARTHRITIS

REACTIONS (1)
  - Angiopathy [Unknown]

NARRATIVE: CASE EVENT DATE: 20140718
